FAERS Safety Report 9476634 (Version 1)
Quarter: 2013Q3

REPORT INFORMATION
  Report Type: Spontaneous
  Country: US (occurrence: None)
  Receive Date: 20130823
  Receipt Date: 20130823
  Transmission Date: 20140515
  Serious: Yes (Other)
  Sender: FDA-Public Use
  Company Number: None

PATIENT
  Age: 2 Month
  Sex: Female

DRUGS (1)
  1. PROLIA [Suspect]
     Indication: OSTEOPOROSIS
     Dates: start: 20130410, end: 20130410

REACTIONS (6)
  - Arthropod bite [None]
  - Pruritus [None]
  - Blister [None]
  - Rash [None]
  - Urticaria [None]
  - Myalgia [None]
